FAERS Safety Report 7332418-1 (Version None)
Quarter: 2011Q1

REPORT INFORMATION
  Report Type: 
  Country: None (occurrence: None)
  Receive Date: 20110304
  Receipt Date: 20110223
  Transmission Date: 20110831
  Serious: Yes (Hospitalization)
  Sender: FDA-Public Use
  Company Number: US-ROCHE-760517

PATIENT
  Sex: Female
  Weight: 71.4 kg

DRUGS (5)
  1. GEMCITABINE [Suspect]
     Indication: BREAST CANCER
     Route: 065
     Dates: start: 20110124
  2. CELEXA [Concomitant]
  3. BEVACIZUMAB [Suspect]
     Indication: BREAST CANCER
     Route: 042
     Dates: start: 20110124
  4. IMODIUM MULTI-SYMPTOM RELIEF [Concomitant]
     Dosage: FREQUENCY: PRN
  5. CAPECITABINE [Suspect]
     Indication: BREAST CANCER
     Dosage: FREQUENCY: BID D1-14
     Route: 065
     Dates: start: 20110124, end: 20110206

REACTIONS (7)
  - ANXIETY [None]
  - DIARRHOEA [None]
  - HEADACHE [None]
  - DIZZINESS [None]
  - DYSPNOEA [None]
  - EMOTIONAL DISTRESS [None]
  - DEHYDRATION [None]
